FAERS Safety Report 8608254-2 (Version None)
Quarter: 2012Q3

REPORT INFORMATION
  Report Type: 
  Country: None (occurrence: None)
  Receive Date: 20120808
  Receipt Date: 20120730
  Transmission Date: 20120928
  Serious: Yes (Hospitalization)
  Sender: FDA-Public Use
  Company Number: B0820597A

PATIENT
  Age: 80 Year
  Sex: Male

DRUGS (6)
  1. ASPIRIN [Concomitant]
  2. ACYCLOVIR [Suspect]
     Indication: HERPES ZOSTER
     Dosage: 800 MG / FIVE TIMES PER DAY / ORAL
     Route: 048
  3. CHLORAMPHENICOL [Concomitant]
  4. ALLOPURINOL [Concomitant]
  5. CHLORPHENIRAMINE MALEATE [Concomitant]
  6. ISOSORBIDE DINITRATE [Concomitant]

REACTIONS (8)
  - DYSPNOEA [None]
  - MENTAL STATUS CHANGES [None]
  - MALAISE [None]
  - STUPOR [None]
  - VOMITING [None]
  - ENCEPHALITIS [None]
  - GENERAL PHYSICAL HEALTH DETERIORATION [None]
  - DEHYDRATION [None]
